FAERS Safety Report 8569428-2 (Version None)
Quarter: 2012Q3

REPORT INFORMATION
  Report Type: 
  Country: None (occurrence: None)
  Receive Date: 20120803
  Receipt Date: 20120209
  Transmission Date: 20120928
  Serious: No
  Sender: FDA-Public Use
  Company Number: US-ABBOTT-12P-163-0906124-00

PATIENT
  Weight: 89.438 kg

DRUGS (1)
  1. NIASPAN [Suspect]
     Indication: BLOOD CHOLESTEROL INCREASED
     Dosage: ONCE DAILY AT BEDTIME

REACTIONS (4)
  - FLUSHING [None]
  - FEELING HOT [None]
  - ANXIETY [None]
  - PRURITUS [None]
